FAERS Safety Report 7455990 (Version 3)
Quarter: 2012Q4

REPORT INFORMATION
  Report Type: 
  Country: CN (occurrence: CN)
  Receive Date: 20100707
  Receipt Date: 20121004
  Transmission Date: 20130627
  Serious: Yes (Hospitalization)
  Sender: FDA-Public Use
  Company Number: CN-JNJFOC-20100607784

PATIENT
  Age: 2 Year
  Sex: Male
  Weight: 12 kg

DRUGS (3)
  1. CHILDRENS MOTRIN [Suspect]
     Route: 048
  2. CHILDRENS MOTRIN [Suspect]
     Indication: PYREXIA
     Dosage: 4ml per serving eight times for 3 days
     Route: 048
     Dates: start: 20100620, end: 20100622
  3. AMOXICILLIN [Suspect]
     Indication: INFLAMMATION
     Route: 065
     Dates: start: 20100620, end: 20100622

REACTIONS (2)
  - Haematuria [Recovered/Resolved]
  - Liver function test abnormal [Unknown]
